FAERS Safety Report 6283047-2 (Version None)
Quarter: 2009Q3

REPORT INFORMATION
  Report Type: 
  Country: None (occurrence: None)
  Receive Date: 20090724
  Receipt Date: 20090724
  Transmission Date: 20100115
  Serious: Yes (Other)
  Sender: FDA-Public Use
  Company Number: US-PFIZER INC-2005107111

PATIENT
  Sex: Female
  Weight: 56.2 kg

DRUGS (3)
  1. XALATAN [Suspect]
     Indication: OCULAR HYPERTENSION
     Route: 047
     Dates: start: 20000101
  2. XALATAN [Suspect]
     Indication: GLAUCOMA
  3. MULTI-VITAMINS [Concomitant]

REACTIONS (12)
  - BLOOD PRESSURE ABNORMAL [None]
  - CONFUSIONAL STATE [None]
  - DRUG HYPERSENSITIVITY [None]
  - EYE DISORDER [None]
  - FATIGUE [None]
  - FEELING ABNORMAL [None]
  - HYPERSENSITIVITY [None]
  - INSOMNIA [None]
  - IRIS DISORDER [None]
  - MADAROSIS [None]
  - PRURITUS [None]
  - UNDERDOSE [None]
